FAERS Safety Report 24367648 (Version 1)
Quarter: 2024Q3

REPORT INFORMATION
  Report Type: Spontaneous
  Country: US (occurrence: US)
  Receive Date: 20240926
  Receipt Date: 20240926
  Transmission Date: 20241016
  Serious: Yes (Death, Hospitalization)
  Sender: PUMA
  Company Number: US-PUMA BIOTECHNOLOGY, INC.-2024-PUM-US001276

PATIENT

DRUGS (2)
  1. NERLYNX [Suspect]
     Active Substance: NERATINIB
     Indication: HER2 positive breast cancer
     Dosage: UNK
  2. XELODA [Concomitant]
     Active Substance: CAPECITABINE
     Indication: Product used for unknown indication

REACTIONS (6)
  - Cardiac arrest [Fatal]
  - Arterial occlusive disease [Fatal]
  - Gastrointestinal haemorrhage [Unknown]
  - Anaemia [Unknown]
  - Diarrhoea [Unknown]
  - Off label use [Unknown]

NARRATIVE: CASE EVENT DATE: 20240101
